FAERS Safety Report 6791185-0 (Version None)
Quarter: 2010Q2

REPORT INFORMATION
  Report Type: 
  Country: None (occurrence: None)
  Receive Date: 20100623
  Receipt Date: 20100623
  Transmission Date: 20101027
  Serious: No
  Sender: FDA-Public Use
  Company Number: None

PATIENT
  Age: 30 Year
  Sex: Female
  Weight: 56.6996 kg

DRUGS (2)
  1. SOTRET [Suspect]
     Indication: ACNE
     Dosage: 120 MG DAILY FOR 1 MONTH PO; REDUCED DOWN TO 60MG DAILY FOR 4 MONTHS PO
     Route: 048
     Dates: start: 20090101, end: 20090201
  2. SOTRET [Suspect]
     Indication: ACNE
     Dosage: 120 MG DAILY FOR 1 MONTH PO; REDUCED DOWN TO 60MG DAILY FOR 4 MONTHS PO
     Route: 048
     Dates: start: 20090201, end: 20090601

REACTIONS (2)
  - COLITIS ULCERATIVE [None]
  - RECTAL HAEMORRHAGE [None]
